FAERS Safety Report 5945919-5 (Version None)
Quarter: 2008Q4

REPORT INFORMATION
  Report Type: 
  Country: None (occurrence: None)
  Receive Date: 20081110
  Receipt Date: 20081031
  Transmission Date: 20090506
  Serious: Yes (Hospitalization, Other)
  Sender: FDA-Public Use
  Company Number: US-BAYER-200818460NA

PATIENT
  Age: 71 Year
  Sex: Male
  Weight: 109 kg

DRUGS (22)
  1. NEXAVAR [Suspect]
     Indication: RENAL CELL CARCINOMA
     Dosage: TOTAL DAILY DOSE: 800 MG  UNIT DOSE: 200 MG
     Route: 048
     Dates: start: 20060301, end: 20080301
  2. NEXAVAR [Suspect]
     Dosage: TOTAL DAILY DOSE: 400 MG  UNIT DOSE: 200 MG
     Route: 048
     Dates: start: 20080401
  3. NEXAVAR [Suspect]
     Route: 048
  4. NEXAVAR [Suspect]
     Dosage: TOTAL DAILY DOSE: 400 MG  UNIT DOSE: 200 MG
     Route: 048
     Dates: start: 20080924
  5. BLOOD PRESSURE MEDICATION [Concomitant]
     Indication: HYPERTENSION
  6. ASPIRIN [Concomitant]
     Dosage: TOTAL DAILY DOSE: 81 MG
  7. ATENOLOL [Concomitant]
     Dosage: TOTAL DAILY DOSE: 125 MG
  8. COLCHICINE [Concomitant]
     Dosage: TOTAL DAILY DOSE: 1.2 MG
  9. ALLOPURINOL [Concomitant]
     Dosage: TOTAL DAILY DOSE: 100 MG
  10. LASIX [Concomitant]
     Dosage: TOTAL DAILY DOSE: 120 MG
  11. GLIPIZIDE [Concomitant]
     Dosage: TOTAL DAILY DOSE: 30 MG
  12. FERROUS SULFATE [Concomitant]
     Dosage: TOTAL DAILY DOSE: 65 MG
  13. FOLIC ACID [Concomitant]
     Dosage: TOTAL DAILY DOSE: 800 MG
  14. VITAMIN B-12 [Concomitant]
     Dosage: TOTAL DAILY DOSE: 1000 ?G/KG
  15. ACIDOPHILUS [Concomitant]
  16. ZEMPLAR [Concomitant]
     Dosage: TOTAL DAILY DOSE: 1 MG
  17. SODIUM BICARBONATE [Concomitant]
     Dosage: TOTAL DAILY DOSE: 1300 MG
  18. VITAMIN D [Concomitant]
  19. POTASSIUM CHLORIDE [Concomitant]
  20. HYDROCODONE- APAP [Concomitant]
     Indication: PAIN
  21. ACTOS [Concomitant]
     Dates: end: 20080501
  22. MONOPRIL [Concomitant]
     Dosage: TOTAL DAILY DOSE: 40 MG

REACTIONS (23)
  - ANGINA PECTORIS [None]
  - ASTHENIA [None]
  - BLOOD PARATHYROID HORMONE INCREASED [None]
  - DEPRESSION [None]
  - DIABETES MELLITUS [None]
  - DIARRHOEA [None]
  - DRY MOUTH [None]
  - DRY SKIN [None]
  - DYSPHONIA [None]
  - DYSPNOEA [None]
  - ERYTHEMA [None]
  - FATIGUE [None]
  - GALLBLADDER DISORDER [None]
  - HYPERKERATOSIS [None]
  - HYPERTENSION [None]
  - HYPOAESTHESIA [None]
  - INCREASED TENDENCY TO BRUISE [None]
  - METASTASES TO BONE [None]
  - MYOCARDIAL INFARCTION [None]
  - OEDEMA PERIPHERAL [None]
  - PALMAR-PLANTAR ERYTHRODYSAESTHESIA SYNDROME [None]
  - PANCREATITIS [None]
  - VITAMIN D DECREASED [None]
